FAERS Safety Report 21870613 (Version 1)
Quarter: 2023Q1

REPORT INFORMATION
  Report Type: Spontaneous
  Country: US (occurrence: None)
  Receive Date: 20230113
  Receipt Date: 20230113
  Transmission Date: 20230418
  Serious: Yes (Death)
  Sender: FDA-Public Use
  Company Number: None

PATIENT
  Age: 82 Year
  Sex: Male

DRUGS (1)
  1. ENOXAPARIN [Suspect]
     Active Substance: ENOXAPARIN
     Dosage: 60MG DAILY SUBCUTANEOUS?
     Route: 058
     Dates: start: 202208, end: 20221231

REACTIONS (1)
  - Death [None]

NARRATIVE: CASE EVENT DATE: 20221231
